FAERS Safety Report 8256555-2 (Version None)
Quarter: 2012Q2

REPORT INFORMATION
  Report Type: 
  Country: None (occurrence: None)
  Receive Date: 20120403
  Receipt Date: 20120329
  Transmission Date: 20120825
  Serious: Yes (Life-Threatening, Hospitalization, Other)
  Sender: FDA-Public Use
  Company Number: JP-PFIZER INC-2011314393

PATIENT
  Age: 74 Year
  Sex: Male
  Weight: 54.3 kg

DRUGS (2)
  1. VALSARTAN [Concomitant]
     Dosage: 40 MG, 1X/DAY
     Route: 048
     Dates: start: 20111210, end: 20111219
  2. SUTENT [Suspect]
     Indication: RENAL CELL CARCINOMA
     Dosage: 37.5 MG, 1X/DAY
     Route: 048
     Dates: start: 20111207, end: 20111217

REACTIONS (12)
  - PULMONARY OEDEMA [None]
  - DECREASED APPETITE [None]
  - STOMATITIS [None]
  - DIZZINESS [None]
  - RENAL FAILURE ACUTE [None]
  - FALL [None]
  - THROMBOCYTOPENIA [None]
  - DEPRESSED LEVEL OF CONSCIOUSNESS [None]
  - PYREXIA [None]
  - CARDIAC FAILURE [None]
  - DISSEMINATED INTRAVASCULAR COAGULATION [None]
  - INTERSTITIAL LUNG DISEASE [None]
